FAERS Safety Report 6905285-5 (Version None)
Quarter: 2010Q3

REPORT INFORMATION
  Report Type: 
  Country: None (occurrence: None)
  Receive Date: 20100730
  Receipt Date: 20100719
  Transmission Date: 20110219
  Serious: Yes (Other)
  Sender: FDA-Public Use
  Company Number: 2010PI000418

PATIENT
  Age: 39 Year
  Sex: Female

DRUGS (4)
  1. TRAMADOL HCL [Suspect]
  2. BUPROPION HCL [Suspect]
  3. NORTRIPTYLINE HCL [Suspect]
  4. PREV MEDS [Concomitant]

REACTIONS (8)
  - BACK PAIN [None]
  - CONFUSIONAL STATE [None]
  - CONVULSION [None]
  - CONVULSIVE THRESHOLD LOWERED [None]
  - DRUG TOXICITY [None]
  - HEART RATE INCREASED [None]
  - METABOLIC DISORDER [None]
  - SPINAL COMPRESSION FRACTURE [None]
